FAERS Safety Report 8304962-1 (Version None)
Quarter: 2012Q2

REPORT INFORMATION
  Report Type: 
  Country: None (occurrence: None)
  Receive Date: 20120423
  Receipt Date: 20120412
  Transmission Date: 20120825
  Serious: Yes (Hospitalization, Other)
  Sender: FDA-Public Use
  Company Number: NL-MEDIMMUNE-MEDI-0013698

PATIENT
  Sex: Male
  Weight: 7.625 kg

DRUGS (7)
  1. ESOMEPRAZOLE SODIUM [Concomitant]
  2. XYLOMETAZOLINE [Concomitant]
     Dosage: ACCORDING TO SCHEDULE
  3. SYNAGIS [Suspect]
     Route: 030
     Dates: start: 20110929, end: 20120412
  4. BACTRIM [Concomitant]
  5. DOMPERIDONE MALEATE [Concomitant]
  6. FERROFUMARATE [Concomitant]
  7. SYNAGIS [Suspect]
     Indication: BRONCHOPULMONARY DYSPLASIA
     Route: 030
     Dates: start: 20110901, end: 20110901

REACTIONS (11)
  - INFANTILE SPITTING UP [None]
  - BRONCHIAL SECRETION RETENTION [None]
  - PYREXIA [None]
  - RETCHING [None]
  - WEIGHT DECREASED [None]
  - PALLOR [None]
  - DYSPHAGIA [None]
  - DEVELOPMENTAL DELAY [None]
  - PHARYNGITIS [None]
  - MALNUTRITION [None]
  - SLEEP APNOEA SYNDROME [None]
